FAERS Safety Report 7003302-8 (Version None)
Quarter: 2010Q3

REPORT INFORMATION
  Report Type: 
  Country: None (occurrence: None)
  Receive Date: 20100920
  Receipt Date: 20100908
  Transmission Date: 20110219
  Serious: Yes (Other)
  Sender: FDA-Public Use
  Company Number: US-ELI_LILLY_AND_COMPANY-US201009002504

PATIENT
  Age: 32 Year
  Sex: Male

DRUGS (1)
  1. XIGRIS [Suspect]
     Indication: SEPSIS
     Dosage: UNK, UNKNOWN

REACTIONS (6)
  - BLOOD URINE PRESENT [None]
  - DISSEMINATED INTRAVASCULAR COAGULATION [None]
  - HYPOXIA [None]
  - INJECTION SITE HAEMORRHAGE [None]
  - PULMONARY HAEMORRHAGE [None]
  - URINE OUTPUT DECREASED [None]
